FAERS Safety Report 21560096 (Version 1)
Quarter: 2022Q4

REPORT INFORMATION
  Report Type: Report from Study
  Country: US (occurrence: US)
  Receive Date: 20221107
  Receipt Date: 20221107
  Transmission Date: 20230113
  Serious: Yes (Hospitalization)
  Sender: FDA-Public Use
  Company Number: US-ABBVIE-4187750

PATIENT
  Sex: Female

DRUGS (1)
  1. SKYRIZI [Suspect]
     Active Substance: RISANKIZUMAB-RZAA
     Indication: Psoriatic arthropathy
     Dosage: WEEK 4 THEN EVERY 12 WEEKS THEREAFTER?FORM STRENGTH: 150 MILLIGRAM
     Route: 058

REACTIONS (2)
  - Blindness [Recovered/Resolved]
  - Superficial injury of eye [Unknown]

NARRATIVE: CASE EVENT DATE: 20220101
